FAERS Safety Report 5121224-4 (Version None)
Quarter: 2006Q4

REPORT INFORMATION
  Report Type: 
  Country: None (occurrence: None)
  Receive Date: 20061002
  Receipt Date: 20060922
  Transmission Date: 20070319
  Serious: Yes (Other)
  Sender: FDA-Public Use
  Company Number: 2006-08-0870

PATIENT
  Age: 78 Year
  Sex: Female
  Weight: 56.246 kg

DRUGS (9)
  1. ASMANEX (MOMETASONE FUROATE (ORAL)) [Suspect]
     Indication: DRUG USE FOR UNKNOWN INDICATION
     Dosage: 220 MCG:BOD;INH
     Route: 055
     Dates: start: 20060606
  2. SINGULAIR [Concomitant]
  3. PROVENTIL [Concomitant]
  4. RHINOCORT [Concomitant]
  5. IPRATROPIUM BROMIDE [Concomitant]
  6. MULTIVITAMINS, COMBINATIONS [Concomitant]
  7. GLUCOSAMINE SULFATE [Concomitant]
  8. OMEGA 3 [Concomitant]
  9. ZANTAC [Concomitant]

REACTIONS (4)
  - CONDITION AGGRAVATED [None]
  - DRUG DOSE OMISSION [None]
  - MACULAR DEGENERATION [None]
  - PHARMACEUTICAL PRODUCT COMPLAINT [None]
